FAERS Safety Report 17597439 (Version 2)
Quarter: 2021Q1

REPORT INFORMATION
  Report Type: Spontaneous
  Country: US (occurrence: US)
  Receive Date: 20200330
  Receipt Date: 20210329
  Transmission Date: 20210419
  Serious: No
  Sender: FDA-Public Use
  Company Number: US-AUROBINDO-AUR-APL-2020-003285

PATIENT
  Sex: Female
  Weight: 48.5 kg

DRUGS (2)
  1. SERTRALINE HYDROCHLORIDE TABLETS [Suspect]
     Active Substance: SERTRALINE HYDROCHLORIDE
     Indication: DEPRESSION
     Dosage: 50 MILLIGRAM, TWO TIMES A DAY (SOMETIME 100 DEPENDING ON THE SYMPTOMS)
     Route: 065
  2. SERTRALINE HYDROCHLORIDE TABLETS [Suspect]
     Active Substance: SERTRALINE HYDROCHLORIDE
     Dosage: 100 MILLIGRAM, ONCE A DAY (1 TABLET PER DAY)
     Route: 065

REACTIONS (4)
  - Decreased appetite [Unknown]
  - Drug ineffective [Unknown]
  - Product substitution issue [Unknown]
  - Anxiety [Unknown]
